FAERS Safety Report 8766198 (Version 4)
Quarter: 2012Q4

REPORT INFORMATION
  Report Type: 
  Country: FR (occurrence: FR)
  Receive Date: 20120904
  Receipt Date: 20121004
  Transmission Date: 20130627
  Serious: Yes (Other)
  Sender: FDA-Public Use
  Company Number: FR-ROCHE-1109320

PATIENT
  Age: 83 Year
  Sex: Male
  Weight: 65 kg

DRUGS (3)
  1. LUCENTIS [Suspect]
     Indication: AGE-RELATED MACULAR DEGENERATION
     Dosage: Dose: 10 mg/ml
     Route: 050
     Dates: start: 20120807
  2. KARDEGIC [Concomitant]
  3. TRIATEC [Concomitant]

REACTIONS (4)
  - Scotoma [Unknown]
  - Retinal pigment epithelial tear [Not Recovered/Not Resolved]
  - Visual acuity reduced [Unknown]
  - Herpes zoster [Recovering/Resolving]
